FAERS Safety Report 8541405 (Version 2)
Quarter: 2013Q2

REPORT INFORMATION
  Report Type: Spontaneous
  Country: US (occurrence: None)
  Receive Date: 20120315
  Receipt Date: 20121031
  Transmission Date: 20140414
  Serious: Yes (Other)
  Sender: FDA-Public Use
  Company Number: PHHY2011US09088

PATIENT
  Sex: Female

DRUGS (1)
  1. GILENYA (FTY) CAPSULE, 0.5MG [Suspect]
     Dosage: ORAL
     Route: 048

REACTIONS (2)
  - BLOOD PRESSURE DECREASED [None]
  - Musculoskeletal discomfort [None]
